FAERS Safety Report 7375165-2 (Version None)
Quarter: 2011Q1

REPORT INFORMATION
  Report Type: 
  Country: None (occurrence: None)
  Receive Date: 20110325
  Receipt Date: 20110322
  Transmission Date: 20110831
  Serious: Yes (Other)
  Sender: FDA-Public Use
  Company Number: CH-PFIZER INC-2011062927

PATIENT
  Age: 88 Year
  Sex: Male
  Weight: 115 kg

DRUGS (7)
  1. CLINDAMYCIN HCL [Suspect]
     Indication: OSTEOMYELITIS
     Dosage: UNK
     Route: 048
     Dates: start: 20100417, end: 20100422
  2. MEPHANOL [Concomitant]
     Dosage: 1 DF, 1X/DAY
     Route: 048
     Dates: end: 20100417
  3. ANAFRANIL [Concomitant]
     Dosage: 20 MG, 1X/DAY
     Route: 048
  4. AMARYL [Concomitant]
     Dosage: 2 MG, 1X/DAY
     Route: 048
  5. AUGMENTIN [Suspect]
     Indication: ERYSIPELAS
  6. CLINDAMYCIN HCL [Suspect]
     Indication: ERYSIPELAS
  7. AUGMENTIN [Suspect]
     Indication: OSTEOMYELITIS
     Dosage: UNK
     Route: 048
     Dates: start: 20100417, end: 20100421

REACTIONS (4)
  - PRURITUS [None]
  - PURPURA [None]
  - TYPE I HYPERSENSITIVITY [None]
  - RASH [None]
